FAERS Safety Report 18429252 (Version 1)
Quarter: 2020Q4

REPORT INFORMATION
  Report Type: Report from Study
  Country: CN (occurrence: CN)
  Receive Date: 20201026
  Receipt Date: 20201026
  Transmission Date: 20210114
  Serious: Yes (Other)
  Sender: FDA-Public Use
  Company Number: NVSC2020CN285955

PATIENT
  Age: 57 Year
  Sex: Male

DRUGS (19)
  1. ATORVASTATIN CALCIUM. [Concomitant]
     Active Substance: ATORVASTATIN CALCIUM
     Indication: CARDIAC FAILURE
     Dosage: 40 MG, UNKNOWN
     Route: 048
     Dates: start: 20200828, end: 20200828
  2. IPRATROPIUM BROMIDE. [Concomitant]
     Active Substance: IPRATROPIUM BROMIDE
     Indication: PRODUCT USED FOR UNKNOWN INDICATION
     Dosage: 0.5 MG, UNKNOWN,  SOLUTION FOR INHALATION
     Route: 042
     Dates: start: 20200822, end: 20200831
  3. AMIODARONE [Concomitant]
     Active Substance: AMIODARONE
     Indication: CARDIAC FAILURE
     Dosage: 0.2 G, UNKNOWN
     Route: 048
     Dates: start: 20200828
  4. INSULIN GLARGINE [Concomitant]
     Active Substance: INSULIN GLARGINE
     Indication: CARDIAC FAILURE
     Dosage: 10 UNK, 10 UNITS
     Route: 058
     Dates: start: 20200827
  5. ALPRAZOLAM. [Concomitant]
     Active Substance: ALPRAZOLAM
     Indication: PRODUCT USED FOR UNKNOWN INDICATION
     Dosage: 0.4 MG, UNKNOWN
     Route: 048
     Dates: start: 20200822
  6. INSULIN [Concomitant]
     Active Substance: INSULIN NOS
     Indication: CARDIAC FAILURE
     Dosage: 10 UNK, 10 UNITS
     Route: 042
     Dates: start: 20200828, end: 20200828
  7. ASPIRIN. [Concomitant]
     Active Substance: ASPIRIN
     Indication: CARDIAC FAILURE
     Dosage: 0.1 G, UNKNOWN
     Route: 048
     Dates: start: 20200828, end: 20200828
  8. RABEPRAZOLE SODIUM. [Concomitant]
     Active Substance: RABEPRAZOLE SODIUM
     Indication: PRODUCT USED FOR UNKNOWN INDICATION
     Dosage: 20 MG, UNKNOWN
     Route: 048
     Dates: start: 20200828, end: 20200828
  9. AMIODARONE [Concomitant]
     Active Substance: AMIODARONE
     Dosage: 0.45 G, UNKNOWN, INJECTION
     Route: 042
     Dates: start: 20200828, end: 20200828
  10. EZETIMIBE. [Concomitant]
     Active Substance: EZETIMIBE
     Indication: CARDIAC FAILURE
     Dosage: 10 MG, UNKNOWN
     Route: 048
     Dates: start: 20200823
  11. POTASSIUM CHLORIDE. [Concomitant]
     Active Substance: POTASSIUM CHLORIDE
     Indication: CARDIAC FAILURE
     Dosage: 1 G, UNKNOWN
     Route: 048
     Dates: start: 20200827, end: 20200828
  12. METOCLOPRAMIDE DIHYDROCHLORIDE [Concomitant]
     Indication: PRODUCT USED FOR UNKNOWN INDICATION
     Dosage: 10 MG, UNKNOWN
     Route: 042
     Dates: start: 20200828, end: 20200828
  13. METOPROLOL SUCCINATE. [Concomitant]
     Active Substance: METOPROLOL SUCCINATE
     Indication: CARDIAC FAILURE
     Dosage: 47.5 MG, UNKNOWN
     Route: 048
     Dates: start: 20200828
  14. POTASSIUM MAGNESIUM ASPARTATE [Concomitant]
     Active Substance: MAGNESIUM ASPARTATE\POTASSIUM ASPARTATE
     Indication: CARDIAC FAILURE
     Dosage: UNK, 2 TABLET
     Route: 048
     Dates: start: 20200828, end: 20200903
  15. ENTRESTO [Suspect]
     Active Substance: SACUBITRIL\VALSARTAN
     Indication: CARDIAC FAILURE CHRONIC
     Dosage: 25 MG
     Route: 048
     Dates: start: 20200825
  16. TICAGRELOR. [Concomitant]
     Active Substance: TICAGRELOR
     Indication: PRODUCT USED FOR UNKNOWN INDICATION
     Dosage: 90 MG, UNKNOWN
     Route: 048
     Dates: start: 20200828, end: 20200828
  17. DAPAGLIFLOZIN. [Concomitant]
     Active Substance: DAPAGLIFLOZIN
     Indication: CARDIAC FAILURE
     Dosage: 10 MG, UNKNOWN
     Route: 048
     Dates: start: 20200825
  18. POTASSIUM CHLORIDE. [Concomitant]
     Active Substance: POTASSIUM CHLORIDE
     Dosage: 1 G, UNKNOWN, INJECTION
     Route: 042
     Dates: start: 20200828, end: 20200828
  19. MAGNESIUM SULFATE. [Concomitant]
     Active Substance: MAGNESIUM SULFATE
     Indication: CARDIAC FAILURE
     Dosage: 2.5 G, UNKNOWN
     Route: 042
     Dates: start: 20200828, end: 20200828

REACTIONS (2)
  - Ventricular arrhythmia [Recovered/Resolved]
  - Cardiac ventricular thrombosis [Not Recovered/Not Resolved]

NARRATIVE: CASE EVENT DATE: 20200828
